FAERS Safety Report 12995727 (Version 1)
Quarter: 2016Q4

REPORT INFORMATION
  Report Type: Report from Study
  Country: CN (occurrence: CN)
  Receive Date: 20161202
  Receipt Date: 20161202
  Transmission Date: 20170207
  Serious: Yes (Hospitalization, Other)
  Sender: FDA-Public Use
  Company Number: CN-VIIV HEALTHCARE LIMITED-CN2016GSK174386

PATIENT
  Age: 57 Year
  Sex: Female

DRUGS (2)
  1. ADEFOVIR DIPIVOXIL. [Suspect]
     Active Substance: ADEFOVIR DIPIVOXIL
     Indication: ANTIVIRAL TREATMENT
     Dosage: 10 MG, QD
  2. LAMIVUDINE. [Suspect]
     Active Substance: LAMIVUDINE
     Indication: HEPATITIS B
     Dosage: 100 MG, QD

REACTIONS (17)
  - Bone pain [Unknown]
  - Splenomegaly [Unknown]
  - Osteoporosis [Unknown]
  - Gallbladder oedema [Unknown]
  - Fanconi syndrome [Unknown]
  - Arthralgia [Unknown]
  - Back pain [Unknown]
  - Osteoarthritis [Unknown]
  - Hepatic cirrhosis [Unknown]
  - Abdominal distension [Unknown]
  - Pathogen resistance [Unknown]
  - Musculoskeletal pain [Unknown]
  - Costochondritis [Unknown]
  - Rib fracture [Unknown]
  - Oncogenic osteomalacia [Recovered/Resolved]
  - Musculoskeletal chest pain [Unknown]
  - Chromaturia [Unknown]
